FAERS Safety Report 8668791 (Version 3)
Quarter: 2012Q4

REPORT INFORMATION
  Report Type: 
  Country: US (occurrence: US)
  Receive Date: 20120717
  Receipt Date: 20120901
  Transmission Date: 20130627
  Serious: No
  Sender: FDA-Public Use
  Company Number: US-PFIZER INC-2012169730

PATIENT
  Age: 39 Year
  Sex: Female
  Weight: 66.67 kg

DRUGS (3)
  1. JUNIOR STRENGTH ADVIL [Suspect]
     Dosage: UNK
     Route: 048
     Dates: start: 20120714, end: 20120714
  2. FIORICET [Concomitant]
     Indication: MIGRAINE
     Dosage: UNK, as needed
  3. ASPIRIN [Concomitant]
     Dosage: UNK, once a day

REACTIONS (3)
  - Off label use [Unknown]
  - Throat irritation [Not Recovered/Not Resolved]
  - Product taste abnormal [Not Recovered/Not Resolved]
